FAERS Safety Report 15358613 (Version 3)
Quarter: 2018Q4

REPORT INFORMATION
  Report Type: Spontaneous
  Country: KR (occurrence: KR)
  Receive Date: 20180906
  Receipt Date: 20181001
  Transmission Date: 20190204
  Serious: Yes (Hospitalization, Other)
  Sender: FDA-Public Use
  Company Number: KR-009507513-1808KOR013736

PATIENT
  Sex: Female

DRUGS (17)
  1. KEYTRUDA [Suspect]
     Active Substance: PEMBROLIZUMAB
     Dosage: ADMINISTRATION INTERVAL 2 WEEKS
     Dates: start: 20180820, end: 20180820
  2. KEYTRUDA [Suspect]
     Active Substance: PEMBROLIZUMAB
     Dosage: UNK
     Dates: start: 20180806
  3. PENIRAMIN [Concomitant]
     Dosage: STRENGTH: 4MG/2ML/A
  4. FRESOFOL MCT [Concomitant]
  5. VITAMINS (UNSPECIFIED) [Concomitant]
     Active Substance: VITAMINS
  6. PETHIDINE HCL JEIL [Concomitant]
     Dosage: STRENGTH: 25MG/0.5ML
  7. FENTANYL CITRATE HANA [Concomitant]
  8. COMBIFLEX [Concomitant]
  9. COMBIFLEX [Concomitant]
  10. OXYGEN. [Concomitant]
     Active Substance: OXYGEN
  11. KEYTRUDA [Suspect]
     Active Substance: PEMBROLIZUMAB
     Dosage: UNK
     Dates: start: 20180716
  12. HEPARIN SODIUM. [Concomitant]
     Active Substance: HEPARIN SODIUM
  13. KEYTRUDA [Suspect]
     Active Substance: PEMBROLIZUMAB
     Indication: PRODUCT USE IN UNAPPROVED INDICATION
     Dosage: UNK
     Dates: start: 20180620
  14. FURTMAN [Concomitant]
  15. ANESTHETIC [Concomitant]
     Active Substance: BENZOCAINE\LIDOCAINE HYDROCHLORIDE
     Route: 042
  16. SODIUM CHLORIDE. [Concomitant]
     Active Substance: SODIUM CHLORIDE
     Dosage: STRENGHT 100 ML (BAG)
     Dates: start: 20180820, end: 20180820
  17. FREAMINE III NOS [Concomitant]
     Active Substance: AMINO ACIDS
     Dosage: STRENGTH 8.5 % INJECTION 250 ML BAG
     Dates: start: 20180820, end: 20180820

REACTIONS (4)
  - Inappropriate schedule of product administration [Unknown]
  - General anaesthesia [Unknown]
  - Sepsis [Unknown]
  - Product use in unapproved indication [Unknown]

NARRATIVE: CASE EVENT DATE: 2018
